FAERS Safety Report 18475752 (Version 5)
Quarter: 2021Q3

REPORT INFORMATION
  Report Type: Spontaneous
  Country: US (occurrence: US)
  Receive Date: 20201106
  Receipt Date: 20210820
  Transmission Date: 20211014
  Serious: Yes (Other)
  Sender: FDA-Public Use
  Company Number: US-PFIZER INC-2019305403

PATIENT
  Age: 43 Year
  Sex: Female

DRUGS (1)
  1. LYRICA [Suspect]
     Active Substance: PREGABALIN
     Dosage: 150 MG, 1 CAPSULE 4 TIMES DAILY
     Route: 048

REACTIONS (5)
  - Pain [Unknown]
  - Drug dependence [Unknown]
  - Confusional state [Unknown]
  - Depression [Unknown]
  - Intentional overdose [Unknown]
